FAERS Safety Report 5952012-4 (Version None)
Quarter: 2008Q4

REPORT INFORMATION
  Report Type: 
  Country: None (occurrence: None)
  Receive Date: 20081113
  Receipt Date: 20071119
  Transmission Date: 20090506
  Serious: No
  Sender: FDA-Public Use
  Company Number: A0695172A

PATIENT
  Age: 60 Year
  Sex: Female

DRUGS (6)
  1. COREG [Suspect]
     Indication: HYPERTENSION
     Dosage: 6.25MG TWICE PER DAY
     Route: 048
     Dates: start: 20070301
  2. ACIPHEX [Concomitant]
  3. CYMBALTA [Concomitant]
  4. DIOVAN [Concomitant]
  5. ABILIFY [Concomitant]
  6. DOXEPIN HCL [Concomitant]

REACTIONS (4)
  - ALOPECIA [None]
  - FATIGUE [None]
  - MUSCULAR WEAKNESS [None]
  - WEIGHT INCREASED [None]
